FAERS Safety Report 10752969 (Version 3)
Quarter: 2015Q2

REPORT INFORMATION
  Report Type: Spontaneous
  Country: US (occurrence: US)
  Receive Date: 20150130
  Receipt Date: 20150501
  Transmission Date: 20150821
  Serious: Yes (Hospitalization, Other)
  Sender: FDA-Public Use
  Company Number: US-TEVA-537004USA

PATIENT
  Age: 60 Year
  Sex: Male

DRUGS (1)
  1. COPAXONE [Suspect]
     Active Substance: GLATIRAMER ACETATE
     Indication: MULTIPLE SCLEROSIS
     Dates: start: 20081008

REACTIONS (10)
  - Multiple sclerosis [Unknown]
  - Anosmia [Unknown]
  - VIIth nerve paralysis [Unknown]
  - Muscular weakness [Unknown]
  - Ageusia [Unknown]
  - Speech disorder [Unknown]
  - Dysphagia [Unknown]
  - Choking [Unknown]
  - Drug ineffective [Unknown]
  - Multiple sclerosis relapse [Unknown]

NARRATIVE: CASE EVENT DATE: 201501
